FAERS Safety Report 7943868-4 (Version None)
Quarter: 2011Q4

REPORT INFORMATION
  Report Type: 
  Country: None (occurrence: None)
  Receive Date: 20111128
  Receipt Date: 20111123
  Transmission Date: 20120403
  Serious: Yes (Other)
  Sender: FDA-Public Use
  Company Number: US-ROCHE-789860

PATIENT
  Sex: Female
  Weight: 72.64 kg

DRUGS (3)
  1. DOXYCYCLINE [Concomitant]
  2. ACCUTANE [Suspect]
     Indication: ACNE
     Route: 065
     Dates: start: 19980701, end: 19980801
  3. ACCUTANE [Suspect]
     Dates: start: 20000801, end: 20010101

REACTIONS (8)
  - INFLAMMATORY BOWEL DISEASE [None]
  - ECZEMA [None]
  - IRRITABLE BOWEL SYNDROME [None]
  - COLITIS ULCERATIVE [None]
  - CROHN'S DISEASE [None]
  - EMOTIONAL DISTRESS [None]
  - DEPRESSION [None]
  - LIP DRY [None]
